FAERS Safety Report 18156408 (Version 2)
Quarter: 2022Q1

REPORT INFORMATION
  Report Type: Spontaneous
  Country: US (occurrence: US)
  Receive Date: 20200817
  Receipt Date: 20220201
  Transmission Date: 20220423
  Serious: Yes (Other)
  Sender: FDA-Public Use
  Company Number: US-PFIZER INC-2020306211

PATIENT
  Age: 78 Year
  Sex: Female

DRUGS (1)
  1. AROMASIN [Suspect]
     Active Substance: EXEMESTANE
     Indication: Breast cancer female
     Dosage: 25 MG

REACTIONS (5)
  - Dementia [Unknown]
  - Hypoacusis [Unknown]
  - Confusional state [Unknown]
  - Malaise [Unknown]
  - Memory impairment [Unknown]
